FAERS Safety Report 8548671-2 (Version None)
Quarter: 2012Q3

REPORT INFORMATION
  Report Type: 
  Country: None (occurrence: None)
  Receive Date: 20120720
  Receipt Date: 20120720
  Transmission Date: 20120928
  Serious: Yes (Life-Threatening, Other)
  Sender: FDA-Public Use
  Company Number: None

PATIENT
  Age: 50 Year
  Sex: Female
  Weight: 45.3597 kg

DRUGS (1)
  1. SINGULAIR [Suspect]
     Indication: ASTHMA
     Dosage: 10 MG 1 A DAY PO
     Route: 048
     Dates: start: 20071106, end: 20091002

REACTIONS (3)
  - FEELING ABNORMAL [None]
  - IMPAIRED WORK ABILITY [None]
  - ASTHMA [None]
